FAERS Safety Report 24771863 (Version 1)
Quarter: 2024Q4

REPORT INFORMATION
  Report Type: Spontaneous
  Country: CH (occurrence: CH)
  Receive Date: 20241224
  Receipt Date: 20241224
  Transmission Date: 20250115
  Serious: Yes (Hospitalization)
  Sender: PURDUE
  Company Number: CH-PURDUE-USA-2024-0314214

PATIENT
  Age: 50 Year
  Sex: Female

DRUGS (15)
  1. HYDROMORPHONE [Suspect]
     Active Substance: HYDROMORPHONE
     Indication: Product used for unknown indication
     Dosage: UNK
     Route: 065
     Dates: start: 20241125, end: 20241125
  2. NALOXONE HYDROCHLORIDE [Suspect]
     Active Substance: NALOXONE HYDROCHLORIDE
     Indication: Product used for unknown indication
     Dosage: UNK
     Route: 065
     Dates: start: 20241125, end: 20241125
  3. FENTANYL [Suspect]
     Active Substance: FENTANYL
     Indication: Product used for unknown indication
     Dosage: UNK
     Route: 062
     Dates: start: 20241125, end: 20241125
  4. XARELTO [Concomitant]
     Active Substance: RIVAROXABAN
     Indication: Product used for unknown indication
     Dosage: UNK
     Route: 065
  5. ACETAMINOPHEN [Concomitant]
     Active Substance: ACETAMINOPHEN
     Indication: Product used for unknown indication
     Dosage: UNK
     Route: 065
  6. MOVICOL [Concomitant]
     Active Substance: POLYETHYLENE GLYCOL 3350\POTASSIUM CHLORIDE\SODIUM BICARBONATE\SODIUM CHLORIDE
     Indication: Product used for unknown indication
     Dosage: UNK
     Route: 065
  7. Riopan [Concomitant]
     Indication: Product used for unknown indication
     Dosage: UNK
     Route: 065
  8. PREGABALIN [Concomitant]
     Active Substance: PREGABALIN
     Indication: Product used for unknown indication
     Dosage: UNK
     Route: 065
  9. Temesta [Concomitant]
     Indication: Product used for unknown indication
     Dosage: 1X/DAY MAX
     Route: 065
  10. ESOMEPRAZOLE [Concomitant]
     Active Substance: ESOMEPRAZOLE
     Indication: Product used for unknown indication
     Dosage: UNK
     Route: 065
  11. BUPIVACAINE;MORPHINE [Concomitant]
     Indication: Product used for unknown indication
     Dosage: 16MG / 3.2MG WITHIN 24 H (PUMP)
     Route: 040
     Dates: start: 20240911
  12. BUPIVACAINE;MORPHINE [Concomitant]
     Dosage: 0.9MG / 0.18MG 10 DOSES WITHIN 24 H
     Route: 040
  13. CEMIPLIMAB [Concomitant]
     Active Substance: CEMIPLIMAB
     Indication: Squamous cell carcinoma of the cervix
     Dosage: UNK
     Route: 065
     Dates: start: 20230413
  14. CEMIPLIMAB [Concomitant]
     Active Substance: CEMIPLIMAB
     Dosage: 0.9MG / 0.18MG 10 DOSES WITHIN 24 H
     Route: 040
  15. Paspertin [Concomitant]
     Indication: Product used for unknown indication
     Dosage: 10 MG 3X/DAY MAX
     Route: 065

REACTIONS (5)
  - Respiratory failure [Recovering/Resolving]
  - Altered state of consciousness [Recovered/Resolved]
  - Acute pulmonary oedema [Unknown]
  - Hypertension [Unknown]
  - Drug withdrawal syndrome [Unknown]

NARRATIVE: CASE EVENT DATE: 20241125
